FAERS Safety Report 7264366-X (Version None)
Quarter: 2011Q1

REPORT INFORMATION
  Report Type: 
  Country: None (occurrence: None)
  Receive Date: 20110131
  Receipt Date: 20110118
  Transmission Date: 20110831
  Serious: No
  Sender: FDA-Public Use
  Company Number: US-BIOGENIDEC-2011BI002157

PATIENT
  Sex: Female

DRUGS (2)
  1. AVONEX [Suspect]
     Indication: MULTIPLE SCLEROSIS
     Route: 030
     Dates: start: 19970101
  2. AVONEX [Suspect]
     Route: 030

REACTIONS (7)
  - INJURY ASSOCIATED WITH DEVICE [None]
  - NASOPHARYNGITIS [None]
  - STRESS [None]
  - WEIGHT DECREASED [None]
  - DECREASED APPETITE [None]
  - INJECTION SITE PAIN [None]
  - WEIGHT INCREASED [None]
